FAERS Safety Report 9319100 (Version 1)
Quarter: 2013Q2

REPORT INFORMATION
  Report Type: Spontaneous
  Country: US (occurrence: None)
  Receive Date: 20130523
  Receipt Date: 20130523
  Transmission Date: 20140414
  Serious: Yes (Hospitalization)
  Sender: FDA-Public Use
  Company Number: 2013-US-000016

PATIENT
  Age: 5 Day
  Sex: Male

DRUGS (2)
  1. ERYTHROMYCIN [Suspect]
     Indication: INCLUSION CONJUNCTIVITIS NEONATAL
     Dosage: 50 MG/KG/D; 16 DOSES
  2. UNKNOWN [Suspect]
     Dosage: TOPICAL
     Route: 061

REACTIONS (1)
  - Pyloric stenosis [None]
